FAERS Safety Report 5475330-5 (Version None)
Quarter: 2007Q4

REPORT INFORMATION
  Report Type: 
  Country: None (occurrence: None)
  Receive Date: 20071001
  Receipt Date: 20070921
  Transmission Date: 20080405
  Serious: Yes (Other)
  Sender: FDA-Public Use
  Company Number: 2007331764

PATIENT
  Age: 47 Year
  Sex: Male
  Weight: 86.1834 kg

DRUGS (1)
  1. LISTERINE POCKETPAKS (NO ACTIVE INGREDIENT) [Suspect]
     Indication: DENTAL DISORDER PROPHYLAXIS
     Dosage: 1 STRIP 1 TIME, ORAL
     Route: 048
     Dates: start: 20070920, end: 20070920

REACTIONS (3)
  - DYSPNOEA [None]
  - PARAESTHESIA ORAL [None]
  - THROAT TIGHTNESS [None]
